FAERS Safety Report 10503341 (Version 3)
Quarter: 2014Q4

REPORT INFORMATION
  Report Type: Spontaneous
  Country: US (occurrence: US)
  Receive Date: 20141008
  Receipt Date: 20141223
  Transmission Date: 20150528
  Serious: Yes (Hospitalization)
  Sender: FDA-Public Use
  Company Number: US-UNITED THERAPEUTICS-UNT-2014-007217

PATIENT
  Age: 45 Year
  Sex: Male
  Weight: 135.15 kg

DRUGS (2)
  1. REMODULIN [Suspect]
     Active Substance: TREPROSTINIL
     Indication: COR PULMONALE CHRONIC
     Dosage: 0.098 ?G/KG, CONTINUING
     Route: 041
     Dates: start: 20121001
  2. REMODULIN [Suspect]
     Active Substance: TREPROSTINIL
     Dosage: 0.098 ?G/KG, CONTINUING
     Route: 041
     Dates: start: 20121018

REACTIONS (8)
  - Dyspnoea [Not Recovered/Not Resolved]
  - Fluid retention [Not Recovered/Not Resolved]
  - Anaemia [Recovered/Resolved]
  - Treatment noncompliance [Unknown]
  - Fluid overload [Not Recovered/Not Resolved]
  - Medical device complication [Recovered/Resolved]
  - Dizziness [Recovered/Resolved]
  - Oedema [Not Recovered/Not Resolved]

NARRATIVE: CASE EVENT DATE: 2014
